FAERS Safety Report 6922572-5 (Version None)
Quarter: 2010Q3

REPORT INFORMATION
  Report Type: 
  Country: None (occurrence: None)
  Receive Date: 20100813
  Receipt Date: 20100730
  Transmission Date: 20110219
  Serious: Yes (Hospitalization, Disabling)
  Sender: FDA-Public Use
  Company Number: PHHY2010DE51601

PATIENT
  Age: 46 Year
  Sex: Female
  Weight: 83 kg

DRUGS (4)
  1. CLOZAPINE [Suspect]
     Indication: SCHIZOPHRENIA
     Dosage: UNK
     Dates: start: 20091201
  2. ZELDOX [Suspect]
     Indication: SCHIZOPHRENIA
     Dosage: UNK
     Route: 048
     Dates: start: 20091201
  3. ACTRAPID [Concomitant]
  4. LANTUS [Concomitant]

REACTIONS (10)
  - ASTHENIA [None]
  - DRY SKIN [None]
  - HEPATIC STEATOSIS [None]
  - HEPATOMEGALY [None]
  - HEPATOSPLENOMEGALY [None]
  - MICTURITION URGENCY [None]
  - PALLOR [None]
  - PANCREATITIS [None]
  - THIRST [None]
  - TYPE 2 DIABETES MELLITUS [None]
